FAERS Safety Report 5019420-X (Version None)
Quarter: 2006Q2

REPORT INFORMATION
  Report Type: 
  Country: None (occurrence: None)
  Receive Date: 20060531
  Receipt Date: 20060513
  Transmission Date: 20061013
  Serious: Yes (Other)
  Sender: FDA-Public Use
  Company Number: ENT 2006-0069

PATIENT
  Age: 62 Year
  Sex: Male

DRUGS (4)
  1. COMTAN [Suspect]
     Indication: PARKINSON'S DISEASE
     Dosage: 1000 MG (200 MG, 5 IN 1 D)
  2. PROSCAR [Concomitant]
  3. HEPATODORON [Concomitant]
  4. URISPAS [Concomitant]

REACTIONS (3)
  - ANXIETY [None]
  - HALLUCINATION [None]
  - MUSCULOSKELETAL STIFFNESS [None]
